FAERS Safety Report 4791143-1 (Version None)
Quarter: 2005Q4

REPORT INFORMATION
  Report Type: 
  Country: None (occurrence: None)
  Receive Date: 20051007
  Receipt Date: 20050927
  Transmission Date: 20060501
  Serious: Yes (Other)
  Sender: FDA-Public Use
  Company Number: PHRM2005FR02582

PATIENT
  Age: 49 Year
  Sex: Female

DRUGS (2)
  1. HORMONES [Concomitant]
     Indication: BREAST CANCER METASTATIC
  2. ZOMETA [Suspect]
     Indication: METASTASES TO BONE
     Dosage: 4 MG, QMO
     Route: 042
     Dates: start: 20020101

REACTIONS (4)
  - ABSCESS [None]
  - DENTAL OPERATION [None]
  - IMPAIRED HEALING [None]
  - OSTEONECROSIS [None]
